FAERS Safety Report 7473224 (Version 6)
Quarter: 2015Q4

REPORT INFORMATION
  Report Type: Spontaneous
  Country: US (occurrence: US)
  Receive Date: 20100714
  Receipt Date: 20151215
  Transmission Date: 20160305
  Serious: Yes (Hospitalization, Other)
  Sender: FDA-Public Use
  Company Number: US-BAYER-201027356NA

PATIENT
  Age: 21 Year
  Sex: Female
  Weight: 46.71 kg

DRUGS (23)
  1. VITAMIN C AND E [Concomitant]
     Active Substance: .ALPHA.-TOCOPHEROL\ASCORBIC ACID
     Dosage: UNK
     Dates: start: 2006
  2. YAZ [Suspect]
     Active Substance: DROSPIRENONE\ETHINYL ESTRADIOL
     Indication: ENDOMETRIOSIS
     Dosage: UNK
     Route: 048
  3. LEVONORGESTREL W/ETHINYLESTRADIOL [Concomitant]
     Active Substance: ETHINYL ESTRADIOL\LEVONORGESTREL
  4. LO LOESTRIN FE [Concomitant]
     Active Substance: ETHINYL ESTRADIOL\NORETHINDRONE ACETATE
  5. ALEVE LIQUID GEL CAPS [Concomitant]
     Dosage: UNK
     Dates: start: 2002
  6. AZITHROMYCIN [Concomitant]
     Active Substance: AZITHROMYCIN ANHYDROUS
     Dosage: 1000 MG, UNK
     Route: 048
  7. NYSTATIN / TRIAMCINOLONE [Concomitant]
     Dosage: UNK UNK, BID
  8. OCELLA [Suspect]
     Active Substance: DROSPIRENONE\ETHINYL ESTRADIOL
     Indication: ENDOMETRIOSIS
     Dosage: UNK
     Dates: start: 200902, end: 201004
  9. IRON [Concomitant]
     Active Substance: IRON
     Dosage: 27 MG, QD
     Dates: start: 2007, end: 2009
  10. YAZ [Suspect]
     Active Substance: DROSPIRENONE\ETHINYL ESTRADIOL
     Indication: ENDOMETRIOSIS
     Dosage: UNK
     Dates: start: 200902, end: 201004
  11. MILK OF MAGNESIA [Concomitant]
     Active Substance: MAGNESIUM HYDROXIDE
  12. NEXIUM [Concomitant]
     Active Substance: ESOMEPRAZOLE MAGNESIUM
     Dosage: 40 MG, QD
     Route: 048
  13. FLUOXETINE [Concomitant]
     Active Substance: FLUOXETINE HYDROCHLORIDE
     Dosage: 20 MG, OM
     Route: 048
  14. PROMETHAZINE [Concomitant]
     Active Substance: PROMETHAZINE\PROMETHAZINE HYDROCHLORIDE
     Dosage: 1-2 TABS, PRN
     Route: 048
  15. METRONIDAZOLE. [Concomitant]
     Active Substance: METRONIDAZOLE
     Dosage: 250 MG, TID FOR 7 DAYS
     Route: 048
  16. OCELLA [Suspect]
     Active Substance: DROSPIRENONE\ETHINYL ESTRADIOL
     Indication: ENDOMETRIOSIS
     Dosage: UNK
     Dates: start: 200902, end: 200906
  17. OCELLA [Suspect]
     Active Substance: DROSPIRENONE\ETHINYL ESTRADIOL
     Indication: ENDOMETRIOSIS
     Dosage: UNK
     Route: 048
  18. MEPROZINE [Concomitant]
     Dosage: 1 CAPSULE, PRN
     Route: 048
  19. VITAMIN B12 [Concomitant]
     Active Substance: CYANOCOBALAMIN
     Dosage: 1000 MG, UNK
     Dates: start: 2008
  20. NASONEX [Concomitant]
     Active Substance: MOMETASONE FUROATE
     Dosage: UNK
     Dates: start: 200904
  21. YAZ [Suspect]
     Active Substance: DROSPIRENONE\ETHINYL ESTRADIOL
     Indication: ENDOMETRIOSIS
     Dosage: UNK
     Dates: start: 200902, end: 200906
  22. BELLADONNA AND PHENOBARBITONE [Concomitant]
     Dosage: 2 TABS, TID
     Route: 048
  23. MICROGESTIN [Concomitant]
     Active Substance: ETHINYL ESTRADIOL\NORETHINDRONE ACETATE

REACTIONS (7)
  - Mental disorder [None]
  - Cardiovascular disorder [None]
  - Cholecystectomy [None]
  - Biliary dyskinesia [Unknown]
  - Embolism arterial [None]
  - Product use issue [None]
  - Tachycardia [Unknown]

NARRATIVE: CASE EVENT DATE: 200807
